FAERS Safety Report 4829287-8 (Version None)
Quarter: 2005Q4

REPORT INFORMATION
  Report Type: 
  Country: None (occurrence: None)
  Receive Date: 20051116
  Receipt Date: 20051108
  Transmission Date: 20060501
  Serious: Yes (Life-Threatening, Hospitalization)
  Sender: FDA-Public Use
  Company Number: ES-GLAXOSMITHKLINE-B0400149A

PATIENT
  Age: 45 Year
  Sex: Female

DRUGS (1)
  1. TRIZIVIR [Suspect]
     Indication: HIV INFECTION
     Route: 048
     Dates: start: 20050706, end: 20051011

REACTIONS (15)
  - ASTHENIA [None]
  - BLOOD DISORDER [None]
  - CARDIAC DISORDER [None]
  - COUGH [None]
  - DIARRHOEA [None]
  - DISORIENTATION [None]
  - DYSPNOEA [None]
  - LETHARGY [None]
  - MALAISE [None]
  - NAUSEA [None]
  - PNEUMOCOCCAL INFECTION [None]
  - PYREXIA [None]
  - RASH [None]
  - RESPIRATORY DISORDER [None]
  - VOMITING [None]
